FAERS Safety Report 11619072 (Version 19)
Quarter: 2018Q4

REPORT INFORMATION
  Report Type: Spontaneous
  Country: CA (occurrence: CA)
  Receive Date: 20151012
  Receipt Date: 20181231
  Transmission Date: 20190204
  Serious: Yes (Hospitalization, Other)
  Sender: FDA-Public Use
  Company Number: CA-ROCHE-1644330

PATIENT
  Age: 47 Year
  Sex: Female
  Weight: 95 kg

DRUGS (13)
  1. XOLAIR [Suspect]
     Active Substance: OMALIZUMAB
     Indication: ASTHMA
     Route: 058
     Dates: start: 20131111
  2. XOLAIR [Suspect]
     Active Substance: OMALIZUMAB
     Route: 058
     Dates: start: 20170131
  3. XOLAIR [Suspect]
     Active Substance: OMALIZUMAB
     Route: 058
     Dates: start: 20171221
  4. XOLAIR [Suspect]
     Active Substance: OMALIZUMAB
     Route: 058
     Dates: start: 20170105
  5. XOLAIR [Suspect]
     Active Substance: OMALIZUMAB
     Route: 058
     Dates: start: 20170803
  6. XOLAIR [Suspect]
     Active Substance: OMALIZUMAB
     Route: 058
     Dates: start: 20170302
  7. XOLAIR [Suspect]
     Active Substance: OMALIZUMAB
     Route: 058
     Dates: start: 20170706
  8. XOLAIR [Suspect]
     Active Substance: OMALIZUMAB
     Route: 058
     Dates: start: 20170410
  9. XOLAIR [Suspect]
     Active Substance: OMALIZUMAB
     Route: 058
     Dates: start: 20170831
  10. MOXIFLOXACIN. [Suspect]
     Active Substance: MOXIFLOXACIN
     Indication: DYSPNOEA
     Route: 065
  11. XOLAIR [Suspect]
     Active Substance: OMALIZUMAB
     Route: 058
     Dates: start: 20180625
  12. PREDNISONE. [Suspect]
     Active Substance: PREDNISONE
     Route: 065
  13. PREDNISONE. [Suspect]
     Active Substance: PREDNISONE
     Indication: PRODUCT USED FOR UNKNOWN INDICATION
     Route: 065

REACTIONS (30)
  - Chest discomfort [Unknown]
  - Dyspnoea [Unknown]
  - Respiratory disorder [Recovering/Resolving]
  - Wheezing [Unknown]
  - Forced expiratory volume decreased [Not Recovered/Not Resolved]
  - Joint injury [Unknown]
  - Insomnia [Unknown]
  - Road traffic accident [Unknown]
  - Obstructive airways disorder [Not Recovered/Not Resolved]
  - Head injury [Unknown]
  - Vision blurred [Unknown]
  - CSF pressure increased [Unknown]
  - Idiopathic intracranial hypertension [Unknown]
  - Cough [Unknown]
  - Fall [Unknown]
  - Brain oedema [Unknown]
  - Headache [Unknown]
  - Drug ineffective [Unknown]
  - Asthma [Not Recovered/Not Resolved]
  - Lung infection [Unknown]
  - Pneumonia [Recovered/Resolved]
  - Lower respiratory tract infection [Recovering/Resolving]
  - Cataract [Unknown]
  - Haemoptysis [Recovered/Resolved]
  - Weight increased [Unknown]
  - Myalgia [Unknown]
  - Papilloedema [Unknown]
  - Condition aggravated [Unknown]
  - Adverse drug reaction [Unknown]
  - Laryngitis [Unknown]

NARRATIVE: CASE EVENT DATE: 201410
